FAERS Safety Report 13246671 (Version 2)
Quarter: 2019Q1

REPORT INFORMATION
  Report Type: Spontaneous
  Country: IT (occurrence: IT)
  Receive Date: 20170217
  Receipt Date: 20190326
  Transmission Date: 20190417
  Serious: Yes (Death, Other)
  Sender: FDA-Public Use
  Company Number: IT-JNJFOC-20170214708

PATIENT

DRUGS (1)
  1. IBRUTINIB [Suspect]
     Active Substance: IBRUTINIB
     Indication: CHRONIC LYMPHOCYTIC LEUKAEMIA
     Route: 048

REACTIONS (15)
  - Granulocytopenia [Unknown]
  - Cardiac failure [Fatal]
  - Febrile neutropenia [Unknown]
  - Diarrhoea [Unknown]
  - Sepsis [Fatal]
  - Ileal perforation [Fatal]
  - Atrial fibrillation [Unknown]
  - Hypertension [Unknown]
  - Haemorrhage [Unknown]
  - Pyrexia [Unknown]
  - Haemorrhage intracranial [Unknown]
  - Neoplasm malignant [Unknown]
  - Neoplasm malignant [Fatal]
  - Infection [Unknown]
  - Ischaemic stroke [Unknown]
